FAERS Safety Report 12644029 (Version 1)
Quarter: 2016Q3

REPORT INFORMATION
  Report Type: Spontaneous
  Country: US (occurrence: US)
  Receive Date: 20160811
  Receipt Date: 20160811
  Transmission Date: 20161109
  Serious: No
  Sender: FDA-Public Use
  Company Number: US-LEO PHARMA-243490

PATIENT
  Age: 65 Year
  Sex: Female

DRUGS (1)
  1. PICATO [Suspect]
     Active Substance: INGENOL MEBUTATE
     Indication: PRODUCT USED FOR UNKNOWN INDICATION
     Dosage: ONCE DAILY FOR 3 CONSECUTIVE DAYS
     Route: 061
     Dates: start: 20160804

REACTIONS (2)
  - Application site vesicles [Not Recovered/Not Resolved]
  - Drug administered at inappropriate site [Unknown]

NARRATIVE: CASE EVENT DATE: 20160805
